FAERS Safety Report 15075315 (Version 1)
Quarter: 2018Q2

REPORT INFORMATION
  Report Type: Spontaneous
  Country: US (occurrence: US)
  Receive Date: 20180627
  Receipt Date: 20180627
  Transmission Date: 20180711
  Serious: Yes (Hospitalization, Other)
  Sender: FDA-Public Use
  Company Number: US-SAOL THERAPEUTICS-2018SAO00062

PATIENT
  Age: 35 Year
  Sex: Female
  Weight: 101 kg

DRUGS (23)
  1. BACLOFEN. [Suspect]
     Active Substance: BACLOFEN
     Indication: MUSCLE SPASTICITY
     Dosage: 25 ?G, \DAY
     Route: 037
  2. BACLOFEN. [Suspect]
     Active Substance: BACLOFEN
     Dosage: 33 ?G, \DAY
     Route: 037
  3. BENADRYL [Concomitant]
     Active Substance: DIPHENHYDRAMINE HYDROCHLORIDE
     Dosage: 25 MG, 1X/DAY AS NEEDED
     Route: 048
  4. ATIVAN [Concomitant]
     Active Substance: LORAZEPAM
     Dosage: 1 MG, AS NEEDED
     Route: 048
  5. BACLOFEN. [Suspect]
     Active Substance: BACLOFEN
     Dosage: 37.9 ?G, \DAY
     Route: 037
  6. BACLOFEN. [Suspect]
     Active Substance: BACLOFEN
     Dosage: 43.54 ?G, \DAY
     Route: 037
     Dates: start: 20171121
  7. ZYRTEC [Concomitant]
     Active Substance: CETIRIZINE HYDROCHLORIDE
     Dosage: 10 MG, 1X/DAY AS NEEDED
     Route: 048
  8. BACLOFEN. [Suspect]
     Active Substance: BACLOFEN
     Dosage: 25.5 ?G, \DAY
     Route: 037
  9. BACLOFEN. [Suspect]
     Active Substance: BACLOFEN
     Dosage: 29.98 ?G, \DAY
     Route: 037
  10. BACLOFEN. [Suspect]
     Active Substance: BACLOFEN
     Dosage: 20 MG, 3X/DAY AS NEEDED
     Route: 048
  11. ROXICODONE [Suspect]
     Active Substance: OXYCODONE HYDROCHLORIDE
     Dosage: UNK, UP TO 6X/DAY
     Route: 048
  12. CYMBALTA [Suspect]
     Active Substance: DULOXETINE HYDROCHLORIDE
     Dosage: 30 MG, 1X/DAY
     Route: 048
  13. RESTORIL [Suspect]
     Active Substance: TEMAZEPAM
     Dosage: 15 MG, AS NEEDED AT BEDTIME
     Route: 048
  14. ZANTAC [Concomitant]
     Active Substance: RANITIDINE HYDROCHLORIDE
     Dosage: 150 MG, 1X/DAY AS NEEDED
     Route: 048
  15. SENNA-S [Concomitant]
     Active Substance: DOCUSATE SODIUM\SENNOSIDES
     Dosage: 6 TABLETS, 1X/DAY AS NEEDED
     Route: 048
  16. BACLOFEN. [Suspect]
     Active Substance: BACLOFEN
     Dosage: 26.49 ?G, \DAY
     Route: 037
  17. EXCEDRIN MIGRAINE [Concomitant]
     Active Substance: ACETAMINOPHEN\ASPIRIN\CAFFEINE
     Dosage: 2 TABLETS, AS NEEDED
     Route: 048
  18. CLARITIN [Concomitant]
     Active Substance: LORATADINE
     Dosage: 10 MG, 1X/DAY AS NEEDED
     Route: 048
  19. NEURONTIN [Suspect]
     Active Substance: GABAPENTIN
     Dosage: 900 MG, 3X/DAY
     Route: 048
  20. RESTORIL [Suspect]
     Active Substance: TEMAZEPAM
     Dosage: 30 MG, AS NEEDED AT BEDTIME
     Route: 048
  21. BISACODYL. [Concomitant]
     Active Substance: BISACODYL
     Dosage: 5 MG, 1X/DAY AS NEEDED
     Route: 048
  22. VITAMIN D2 [Concomitant]
     Active Substance: ERGOCALCIFEROL
     Dosage: 1 CAPSULES, 1X/WEEK
     Route: 048
  23. CARBOXYMETHYLCELLULOSE SODIUM 0.25% OPHT DROP [Concomitant]
     Dosage: 1 DROP, 1X/DAY
     Route: 047

REACTIONS (8)
  - Decreased appetite [Unknown]
  - Therapy non-responder [Unknown]
  - Weight decreased [Recovered/Resolved]
  - Altered state of consciousness [Recovered/Resolved]
  - Device damage [Unknown]
  - Unresponsive to stimuli [Recovered/Resolved]
  - Device dislocation [Recovered/Resolved]
  - Medical device site discomfort [Unknown]

NARRATIVE: CASE EVENT DATE: 2017
